FAERS Safety Report 7039791-2 (Version None)
Quarter: 2010Q4

REPORT INFORMATION
  Report Type: 
  Country: None (occurrence: None)
  Receive Date: 20101012
  Receipt Date: 20101005
  Transmission Date: 20110411
  Serious: Yes (Hospitalization, Disabling, Other)
  Sender: FDA-Public Use
  Company Number: US-MERCK-0811USA03903

PATIENT
  Age: 69 Year
  Sex: Female

DRUGS (5)
  1. FOSAMAX [Suspect]
     Indication: OSTEOPENIA
     Route: 048
     Dates: start: 19950101, end: 20080101
  2. CLIMARA [Concomitant]
     Route: 065
  3. LIPITOR [Concomitant]
     Route: 065
  4. PROMETRIUM [Concomitant]
     Route: 065
  5. ALENDRONATE SODIUM [Suspect]
     Indication: OSTEOPENIA
     Route: 048
     Dates: start: 19950101, end: 20080101

REACTIONS (3)
  - ANKLE FRACTURE [None]
  - FEMUR FRACTURE [None]
  - FOOT FRACTURE [None]
